FAERS Safety Report 18806299 (Version 1)
Quarter: 2021Q1

REPORT INFORMATION
  Report Type: Spontaneous
  Country: US (occurrence: US)
  Receive Date: 20210129
  Receipt Date: 20210129
  Transmission Date: 20210419
  Serious: Yes (Hospitalization, Disabling, Other)
  Sender: FDA-Public Use
  Company Number: US-ALVOGEN-2021-ALVOGEN-116321

PATIENT
  Age: 16 Year
  Sex: Male

DRUGS (1)
  1. FENTANYL. [Suspect]
     Active Substance: FENTANYL
     Indication: PRODUCT USED FOR UNKNOWN INDICATION
     Dosage: SNORTING A GRAY POWDER
     Route: 045

REACTIONS (8)
  - Hyperhidrosis [Unknown]
  - Tachycardia [Unknown]
  - Deafness neurosensory [Not Recovered/Not Resolved]
  - Deafness bilateral [Not Recovered/Not Resolved]
  - Unresponsive to stimuli [Unknown]
  - Intentional overdose [Unknown]
  - Cyanosis [Unknown]
  - Somnolence [Unknown]
